FAERS Safety Report 15646978 (Version 1)
Quarter: 2018Q4

REPORT INFORMATION
  Report Type: Spontaneous
  Country: US (occurrence: US)
  Receive Date: 20181122
  Receipt Date: 20181122
  Transmission Date: 20190205
  Serious: No
  Sender: FDA-Public Use
  Company Number: US-BAUSCH-BL-2018-030849

PATIENT
  Age: 93 Year
  Sex: Male

DRUGS (6)
  1. AMLODIPINE [Interacting]
     Active Substance: AMLODIPINE BESYLATE
     Indication: PRODUCT USED FOR UNKNOWN INDICATION
     Route: 065
  2. ZIAC [Interacting]
     Active Substance: BISOPROLOL FUMARATE\HYDROCHLOROTHIAZIDE
     Indication: PRODUCT USED FOR UNKNOWN INDICATION
     Dosage: 2.5-6.25 MG
     Route: 065
  3. VITAMIN B12 [Interacting]
     Active Substance: CYANOCOBALAMIN
     Indication: PRODUCT USED FOR UNKNOWN INDICATION
     Route: 065
  4. VYZULTA [Suspect]
     Active Substance: LATANOPROSTENE BUNOD
     Indication: GLAUCOMA
     Dosage: 1 DROP IN EACH EYE
     Route: 047
     Dates: start: 2018
  5. ALLOPURINOL. [Interacting]
     Active Substance: ALLOPURINOL
     Indication: PRODUCT USED FOR UNKNOWN INDICATION
     Route: 065
  6. VITAMIN D3 [Interacting]
     Active Substance: CHOLECALCIFEROL
     Indication: PRODUCT USED FOR UNKNOWN INDICATION
     Route: 065

REACTIONS (4)
  - Drug interaction [Unknown]
  - Dizziness [Not Recovered/Not Resolved]
  - Visual impairment [Not Recovered/Not Resolved]
  - Balance disorder [Unknown]

NARRATIVE: CASE EVENT DATE: 2018
